FAERS Safety Report 24001923 (Version 3)
Quarter: 2024Q3

REPORT INFORMATION
  Report Type: Report from Study
  Country: US (occurrence: US)
  Receive Date: 20240622
  Receipt Date: 20240826
  Transmission Date: 20241017
  Serious: Yes (Hospitalization, Other)
  Sender: JAZZ
  Company Number: US-JAZZ PHARMACEUTICALS-2022-US-019060

PATIENT
  Age: 58 Year
  Sex: Male

DRUGS (15)
  1. XYWAV [Suspect]
     Active Substance: CALCIUM OXYBATE\MAGNESIUM OXYBATE\POTASSIUM OXYBATE\SODIUM OXYBATE
     Indication: Narcolepsy
     Dosage: 4.5 GRAM, BID
     Route: 048
     Dates: start: 20210212
  2. XYWAV [Suspect]
     Active Substance: CALCIUM OXYBATE\MAGNESIUM OXYBATE\POTASSIUM OXYBATE\SODIUM OXYBATE
     Indication: Cataplexy
     Dosage: UNK
  3. XYWAV [Suspect]
     Active Substance: CALCIUM OXYBATE\MAGNESIUM OXYBATE\POTASSIUM OXYBATE\SODIUM OXYBATE
     Indication: Somnolence
  4. BUPROPION [Suspect]
     Active Substance: BUPROPION
     Indication: Product used for unknown indication
     Dosage: 450 MILLIGRAM
  5. BUPROPION [Suspect]
     Active Substance: BUPROPION
     Dosage: 150 MILLIGRAM, QD
  6. TAMSULOSIN HYDROCHLORIDE [Concomitant]
     Active Substance: TAMSULOSIN HYDROCHLORIDE
     Indication: Product used for unknown indication
     Dosage: UNK
     Dates: start: 20200801
  7. ESZOPICLONE [Concomitant]
     Active Substance: ESZOPICLONE
     Indication: Sleep disorder
     Dosage: 3 MILLIGRAM
     Dates: start: 20200821
  8. LEVOTHYROXINE SODIUM [Concomitant]
     Active Substance: LEVOTHYROXINE SODIUM
     Indication: Product used for unknown indication
     Dosage: 100 MICROGRAM
  9. MODAFINIL [Concomitant]
     Active Substance: MODAFINIL
     Dosage: 400 MILLIGRAM
     Route: 048
     Dates: start: 20200325
  10. METHYLPHENIDATE HYDROCHLORIDE [Concomitant]
     Active Substance: METHYLPHENIDATE HYDROCHLORIDE
     Dosage: 20 MILLIGRAM, QD
     Dates: start: 20190912
  11. NARATRIPTAN HYDROCHLORIDE [Concomitant]
     Active Substance: NARATRIPTAN HYDROCHLORIDE
     Dosage: 2.5 MILLIGRAM
  12. WELLBUTRIN SR [Concomitant]
     Active Substance: BUPROPION HYDROCHLORIDE
     Indication: Product used for unknown indication
     Dosage: 150 MILLIGRAM, QD
  13. ZOLPIDEM TARTRATE [Concomitant]
     Active Substance: ZOLPIDEM TARTRATE
     Indication: Product used for unknown indication
     Dosage: UNK
     Dates: start: 20220512
  14. ZYRTEC [Concomitant]
     Active Substance: CETIRIZINE HYDROCHLORIDE
     Indication: Product used for unknown indication
     Dosage: 0000
     Dates: start: 20210620
  15. DULOXETINE HYDROCHLORIDE [Concomitant]
     Active Substance: DULOXETINE HYDROCHLORIDE
     Indication: Product used for unknown indication
     Dosage: UNK
     Dates: start: 20240809

REACTIONS (16)
  - Intervertebral disc protrusion [Recovered/Resolved]
  - Cyst [Unknown]
  - Spinal stenosis [Unknown]
  - Thrombosis [Unknown]
  - Atrial fibrillation [Unknown]
  - Post procedural complication [Unknown]
  - Tinnitus [Unknown]
  - Feeling jittery [Unknown]
  - Abdominal distension [Unknown]
  - Cough [Unknown]
  - Back pain [Unknown]
  - Treatment noncompliance [Unknown]
  - Contraindicated product administered [Unknown]
  - Drug ineffective [Unknown]
  - Intentional dose omission [Unknown]
  - Therapeutic product effect variable [Unknown]

NARRATIVE: CASE EVENT DATE: 20220501
